FAERS Safety Report 19280464 (Version 1)
Quarter: 2021Q2

REPORT INFORMATION
  Report Type: Spontaneous
  Country: US (occurrence: US)
  Receive Date: 20210521
  Receipt Date: 20210521
  Transmission Date: 20210717
  Serious: Yes (Other)
  Sender: FDA-Public Use
  Company Number: US-DRREDDYS-USA/USA/21/0135749

PATIENT
  Age: 65 Year
  Sex: Male

DRUGS (1)
  1. TREPROSTINIL. [Suspect]
     Active Substance: TREPROSTINIL
     Indication: PULMONARY ARTERIAL HYPERTENSION
     Dosage: THROUGH HICKMAN CATHETER
     Route: 042

REACTIONS (3)
  - Product administration interrupted [Unknown]
  - Withdrawal hypertension [Unknown]
  - Cardiogenic shock [Unknown]
